FAERS Safety Report 12568247 (Version 1)
Quarter: 2016Q3

REPORT INFORMATION
  Report Type: Spontaneous
  Country: US (occurrence: US)
  Receive Date: 20160718
  Receipt Date: 20160718
  Transmission Date: 20161109
  Serious: No
  Sender: FDA-Public Use
  Company Number: US-JUBILANT CADISTA PHARMACEUTICALS-2016JUB00072

PATIENT
  Age: 78 Year
  Sex: Male
  Weight: 77.55 kg

DRUGS (6)
  1. MULTIVITAMIN [Concomitant]
     Active Substance: VITAMINS
  2. ISOSORBIDE. [Concomitant]
     Active Substance: ISOSORBIDE
     Dosage: 60 UNK, UNK
  3. MECLIZINE HYDROCHLORIDE. [Suspect]
     Active Substance: MECLIZINE HYDROCHLORIDE
     Indication: DIABETIC NEUROPATHY
     Dosage: 12.5 MG, 2X/DAY
     Route: 048
     Dates: start: 201508, end: 201508
  4. ASPIRIN. [Concomitant]
     Active Substance: ASPIRIN
     Dosage: 81 MG, UNK
  5. ATORVASTATIN [Concomitant]
     Active Substance: ATORVASTATIN
     Dosage: 20 UNK, UNK
  6. FUROSEMIDE. [Concomitant]
     Active Substance: FUROSEMIDE
     Dosage: 40 MG, UNK

REACTIONS (6)
  - Product use issue [Recovered/Resolved]
  - Feeling abnormal [Recovered/Resolved]
  - Vision blurred [Recovered/Resolved]
  - Fluid retention [Unknown]
  - Dizziness [Recovered/Resolved]
  - Decreased activity [Recovered/Resolved]

NARRATIVE: CASE EVENT DATE: 201508
